FAERS Safety Report 10052350 (Version 1)
Quarter: 2014Q2

REPORT INFORMATION
  Report Type: Spontaneous
  Country: US (occurrence: None)
  Receive Date: 20140401
  Receipt Date: 20140401
  Transmission Date: 20141212
  Serious: Yes (Other)
  Sender: FDA-Public Use
  Company Number: None

PATIENT
  Age: 55 Year
  Sex: Female
  Weight: 68.04 kg

DRUGS (2)
  1. BENZONATE [Suspect]
     Indication: BRONCHITIS
     Route: 048
     Dates: start: 20140329, end: 20140330
  2. BENZONATE [Suspect]
     Indication: COUGH
     Route: 048
     Dates: start: 20140329, end: 20140330

REACTIONS (6)
  - Nasal congestion [None]
  - Rhinorrhoea [None]
  - Eye swelling [None]
  - Swelling face [None]
  - Migraine [None]
  - Sneezing [None]
